FAERS Safety Report 6165443-7 (Version None)
Quarter: 2009Q2

REPORT INFORMATION
  Report Type: 
  Country: None (occurrence: None)
  Receive Date: 20090423
  Receipt Date: 20090415
  Transmission Date: 20091009
  Serious: Yes (Other)
  Sender: FDA-Public Use
  Company Number: PHHY2009CA14243

PATIENT
  Sex: Female

DRUGS (1)
  1. ACLASTA [Suspect]
     Indication: OSTEOPOROSIS
     Dosage: UNK
     Dates: start: 20090113

REACTIONS (5)
  - BRONCHITIS [None]
  - DYSPNOEA [None]
  - NASOPHARYNGITIS [None]
  - NEOPLASM MALIGNANT [None]
  - RESPIRATORY DISTRESS [None]
